FAERS Safety Report 14830956 (Version 2)
Quarter: 2018Q2

REPORT INFORMATION
  Report Type: Report from Study
  Country: BR (occurrence: BR)
  Receive Date: 20180430
  Receipt Date: 20180601
  Transmission Date: 20180711
  Serious: Yes (Hospitalization, Other)
  Sender: FDA-Public Use
  Company Number: PHHY2018BR071588

PATIENT
  Age: 46 Year
  Sex: Female
  Weight: 105 kg

DRUGS (10)
  1. COSENTYX [Suspect]
     Active Substance: SECUKINUMAB
     Indication: PSORIATIC ARTHROPATHY
     Dosage: 300 MG, QW
     Route: 058
     Dates: start: 20180410
  2. CLOPIDOGREL BISULPHATE [Suspect]
     Active Substance: CLOPIDOGREL BISULFATE
     Indication: CEREBRAL ISCHAEMIA
     Dosage: 75 MG, UNK
     Route: 065
     Dates: start: 20180424
  3. AAS [Concomitant]
     Active Substance: ASPIRIN
     Indication: CEREBRAL ISCHAEMIA
     Dosage: 100 MG, UNK
     Route: 065
     Dates: start: 20180424
  4. PANTOPRAZOLE [Concomitant]
     Active Substance: PANTOPRAZOLE
     Indication: GASTROOESOPHAGEAL REFLUX DISEASE
  5. PENTOXIFYLLINE. [Concomitant]
     Active Substance: PENTOXIFYLLINE
     Indication: CEREBRAL ISCHAEMIA
     Dosage: 400 MG, UNK
     Route: 065
     Dates: start: 20180424
  6. PREGABALIN. [Concomitant]
     Active Substance: PREGABALIN
     Indication: JOINT INJURY
     Dosage: 75 MG, UNK
     Route: 065
  7. CYMBALTA [Concomitant]
     Active Substance: DULOXETINE HYDROCHLORIDE
     Indication: JOINT INJURY
     Dosage: 30 MG/DL, UNK
     Route: 065
  8. PANTOPRAZOLE [Concomitant]
     Active Substance: PANTOPRAZOLE
     Indication: HERNIA
     Dosage: 40 MG, UNK
     Route: 065
  9. METHOTREXATE. [Concomitant]
     Active Substance: METHOTREXATE
     Indication: PSORIASIS
     Dosage: 2.5 MG, UNK
     Route: 065
  10. NEO FOLICO [Concomitant]
     Indication: PSORIASIS
     Dosage: 5 MG, UNK
     Route: 065

REACTIONS (13)
  - Aphasia [Not Recovered/Not Resolved]
  - Malaise [Not Recovered/Not Resolved]
  - Chest pain [Unknown]
  - Head discomfort [Unknown]
  - Cerebral ischaemia [Recovered/Resolved]
  - Nervousness [Recovered/Resolved]
  - Loss of consciousness [Unknown]
  - Headache [Not Recovered/Not Resolved]
  - Pain [Not Recovered/Not Resolved]
  - Screaming [Recovered/Resolved]
  - Dyspnoea [Recovered/Resolved]
  - Unresponsive to stimuli [Unknown]
  - Infection [Unknown]

NARRATIVE: CASE EVENT DATE: 20180415
